FAERS Safety Report 4319751-2 (Version None)
Quarter: 2004Q1

REPORT INFORMATION
  Report Type: 
  Country: None (occurrence: None)
  Receive Date: 20040319
  Receipt Date: 20040316
  Transmission Date: 20041129
  Serious: Yes (Death, Life-Threatening, Hospitalization)
  Sender: FDA-Public Use
  Company Number: JP-GLAXOSMITHKLINE-A0503178A

PATIENT
  Age: 60 Year
  Sex: Male

DRUGS (10)
  1. NAVELBINE [Suspect]
     Indication: NON-SMALL CELL LUNG CANCER
     Dosage: 25MG SEE DOSAGE TEXT
     Route: 042
     Dates: start: 20030808, end: 20030815
  2. FUDOSTEINE [Concomitant]
     Dates: start: 20030128, end: 20030905
  3. MAGNESIUM OXIDE [Concomitant]
     Dates: start: 20030128, end: 20030828
  4. LAMISIL [Concomitant]
     Dates: start: 20030128, end: 20030804
  5. CLARITHROMYCIN [Concomitant]
     Dates: start: 20030715, end: 20030721
  6. RHYTHMY [Concomitant]
     Dates: start: 20030715, end: 20030908
  7. LOXONIN [Concomitant]
     Dates: start: 20030726, end: 20030821
  8. MUCOSTA [Concomitant]
     Dates: start: 20030726, end: 20030821
  9. CRAVIT [Concomitant]
     Dates: start: 20030729, end: 20030821
  10. FERROUS CITRATE [Concomitant]
     Dates: start: 20030806, end: 20030924

REACTIONS (9)
  - BODY TEMPERATURE INCREASED [None]
  - CHEST X-RAY ABNORMAL [None]
  - DIARRHOEA [None]
  - DISEASE PROGRESSION [None]
  - HAEMOGLOBIN DECREASED [None]
  - LUNG INFILTRATION [None]
  - MELAENA [None]
  - PLATELET COUNT DECREASED [None]
  - WHITE BLOOD CELL COUNT DECREASED [None]
